FAERS Safety Report 19603708 (Version 1)
Quarter: 2021Q3

REPORT INFORMATION
  Report Type: Report from Study
  Country: US (occurrence: US)
  Receive Date: 20210723
  Receipt Date: 20210723
  Transmission Date: 20211014
  Serious: Yes (Hospitalization)
  Sender: FDA-Public Use
  Company Number: US-EISAI MEDICAL RESEARCH-EC-2021-096484

PATIENT
  Age: 67 Year
  Sex: Female
  Weight: 72.12 kg

DRUGS (40)
  1. FLUCONAZOLE. [Concomitant]
     Active Substance: FLUCONAZOLE
  2. REQUIP [Concomitant]
     Active Substance: ROPINIROLE HYDROCHLORIDE
  3. VITAMIN B12 [Concomitant]
     Active Substance: CYANOCOBALAMIN
     Dosage: 2500 MC
  4. TYLENOL [Concomitant]
     Active Substance: ACETAMINOPHEN
  5. VANCOMYCIN [Concomitant]
     Active Substance: VANCOMYCIN
  6. NYSTATIN. [Concomitant]
     Active Substance: NYSTATIN
  7. PRILOSEC [Concomitant]
     Active Substance: OMEPRAZOLE MAGNESIUM
  8. CHLORTHALIDONE. [Concomitant]
     Active Substance: CHLORTHALIDONE
  9. MULTIVITAMINS [Concomitant]
     Active Substance: VITAMINS
  10. IBUPROFEN. [Concomitant]
     Active Substance: IBUPROFEN
  11. VITAMIN B12 [Concomitant]
     Active Substance: CYANOCOBALAMIN
  12. METRONIDAZOLE. [Concomitant]
     Active Substance: METRONIDAZOLE
  13. LIOTHYRONINE SODIUM. [Concomitant]
     Active Substance: LIOTHYRONINE SODIUM
  14. GABAPENTIN. [Concomitant]
     Active Substance: GABAPENTIN
  15. ONDANSETRON [Concomitant]
     Active Substance: ONDANSETRON
  16. LENVIMA [Suspect]
     Active Substance: LENVATINIB
     Route: 048
     Dates: start: 20201117
  17. LATANOPROST. [Concomitant]
     Active Substance: LATANOPROST
  18. DIFICID [Concomitant]
     Active Substance: FIDAXOMICIN
  19. LENVIMA [Suspect]
     Active Substance: LENVATINIB
     Indication: THYROID CANCER
     Route: 048
     Dates: start: 20180916, end: 201809
  20. LENVIMA [Suspect]
     Active Substance: LENVATINIB
     Dosage: DOSE LOWERED (UNSPECIFIED), FREQUENCY UNKNOWN
     Route: 048
     Dates: end: 2021
  21. ENTRESTO [Concomitant]
     Active Substance: SACUBITRIL\VALSARTAN
     Dosage: 24 MG?26MG
  22. ROSUVASTATIN CALCIUM. [Concomitant]
     Active Substance: ROSUVASTATIN CALCIUM
  23. ROPINIROLE. [Concomitant]
     Active Substance: ROPINIROLE
  24. DAILY VITE [Concomitant]
     Active Substance: VITAMINS
  25. ELIQUIS [Concomitant]
     Active Substance: APIXABAN
  26. LOPERAMIDE [Concomitant]
     Active Substance: LOPERAMIDE
  27. LENVIMA [Suspect]
     Active Substance: LENVATINIB
     Route: 048
     Dates: start: 2020, end: 2020
  28. DIGOXIN. [Concomitant]
     Active Substance: DIGOXIN
     Dosage: DOSE AND FREQUENCY UNKNOWN
  29. ADVIL [Concomitant]
     Active Substance: IBUPROFEN
  30. SELENIUM [Concomitant]
     Active Substance: SELENIUM
  31. ERYTHROMYCIN. [Concomitant]
     Active Substance: ERYTHROMYCIN
  32. BENZONATATE. [Concomitant]
     Active Substance: BENZONATATE
  33. LENVIMA [Suspect]
     Active Substance: LENVATINIB
     Route: 048
     Dates: start: 20200513, end: 202008
  34. VICODIN [Concomitant]
     Active Substance: ACETAMINOPHEN\HYDROCODONE BITARTRATE
     Dosage: 5 MG ? 50 MG
  35. MONTELUKAST SODIUM. [Concomitant]
     Active Substance: MONTELUKAST SODIUM
  36. AZITHROMYCIN ANHYDROUS. [Concomitant]
     Active Substance: AZITHROMYCIN ANHYDROUS
  37. MUPIROCIN. [Concomitant]
     Active Substance: MUPIROCIN
  38. DORZOLAMIDE [Concomitant]
     Active Substance: DORZOLAMIDE
  39. METOPROLOL SUCCINATE. [Concomitant]
     Active Substance: METOPROLOL SUCCINATE
  40. NITROFURANTOIN. [Concomitant]
     Active Substance: NITROFURANTOIN

REACTIONS (2)
  - Oesophageal fistula [Unknown]
  - Malnutrition [Unknown]

NARRATIVE: CASE EVENT DATE: 2021
